FAERS Safety Report 14580452 (Version 1)
Quarter: 2018Q1

REPORT INFORMATION
  Report Type: Report from Study
  Country: BR (occurrence: BR)
  Receive Date: 20180228
  Receipt Date: 20180228
  Transmission Date: 20180509
  Serious: Yes (Other)
  Sender: FDA-Public Use
  Company Number: BR-ROCHE-2078689

PATIENT
  Sex: Female
  Weight: 72 kg

DRUGS (1)
  1. XOLAIR [Suspect]
     Active Substance: OMALIZUMAB
     Indication: URTICARIA CHRONIC
     Route: 058
     Dates: start: 20171016, end: 20171221

REACTIONS (4)
  - Pulmonary fibrosis [Unknown]
  - Urticaria [Not Recovered/Not Resolved]
  - Autoimmune disorder [Unknown]
  - Concomitant disease aggravated [Unknown]
